FAERS Safety Report 8313076-6 (Version None)
Quarter: 2012Q2

REPORT INFORMATION
  Report Type: 
  Country: None (occurrence: None)
  Receive Date: 20120426
  Receipt Date: 20120419
  Transmission Date: 20120825
  Serious: Yes (Hospitalization, Other)
  Sender: FDA-Public Use
  Company Number: US-PFIZER INC-2012038810

PATIENT
  Sex: Male
  Weight: 71.202 kg

DRUGS (6)
  1. SUTENT [Suspect]
     Indication: HAEMATOLOGICAL MALIGNANCY
     Dosage: 50 MG, 1X/DAY
     Route: 048
     Dates: start: 20111228, end: 20120114
  2. HYDROCORTISONE [Concomitant]
     Indication: ADRENAL DISORDER
     Dosage: UNK
  3. VITAMIN D [Concomitant]
     Dosage: UNK
  4. SUTENT [Suspect]
     Indication: RENAL CELL CARCINOMA
     Dosage: 37.5 MG, DAILY 4 WEEKS ON AND 2 WEEKS OFF
     Route: 048
     Dates: start: 20111227
  5. AMLODIPINE [Concomitant]
     Indication: HYPERTENSION
     Dosage: UNK
  6. CALCIUM WITH VITAMIN D [Concomitant]
     Dosage: UNK

REACTIONS (5)
  - EAR PAIN [None]
  - BACK PAIN [None]
  - PAIN IN EXTREMITY [None]
  - DEEP VEIN THROMBOSIS [None]
  - BLOOD POTASSIUM INCREASED [None]
